FAERS Safety Report 6939461-2 (Version None)
Quarter: 2010Q3

REPORT INFORMATION
  Report Type: 
  Country: None (occurrence: None)
  Receive Date: 20100824
  Receipt Date: 20100820
  Transmission Date: 20110219
  Serious: Yes (Life-Threatening)
  Sender: FDA-Public Use
  Company Number: JP-GENENTECH-304745

PATIENT
  Sex: Male

DRUGS (21)
  1. RITUXAN [Suspect]
     Indication: LYMPHOMA
     Dosage: 600 MG, UNK
     Route: 042
     Dates: start: 20100323
  2. RITUXAN [Suspect]
     Dosage: 600 MG, UNK
     Route: 042
     Dates: start: 20100412
  3. RITUXAN [Suspect]
     Dosage: 600 MG, UNK
     Route: 042
     Dates: start: 20100510
  4. RITUXAN [Suspect]
     Dosage: 600 MG, UNK
     Route: 042
     Dates: start: 20100607
  5. CYCLOPHOSPHAMIDE [Concomitant]
     Indication: LYMPHOMA
     Dosage: 1200 MG, SINGLE
     Dates: start: 20100323
  6. CYCLOPHOSPHAMIDE [Concomitant]
     Dosage: 1200 MG, SINGLE
     Dates: start: 20100412
  7. CYCLOPHOSPHAMIDE [Concomitant]
     Dosage: 1200 MG, SINGLE
     Dates: start: 20100510
  8. CYCLOPHOSPHAMIDE [Concomitant]
     Dosage: 1200 MG, SINGLE
     Dates: start: 20100607
  9. DOXORUBICIN HCL [Concomitant]
     Indication: LYMPHOMA
     Dosage: 80 MG, SINGLE
     Dates: start: 20100323
  10. DOXORUBICIN HCL [Concomitant]
     Dosage: 80 MG, SINGLE
     Dates: start: 20100412
  11. DOXORUBICIN HCL [Concomitant]
     Dosage: 80 MG, SINGLE
     Dates: start: 20100510
  12. VINCRISTINE [Concomitant]
     Indication: LYMPHOMA
     Dosage: 2 MG, SINGLE
     Dates: start: 20100323
  13. VINCRISTINE [Concomitant]
     Dosage: 2 MG, SINGLE
     Dates: start: 20100412
  14. VINCRISTINE [Concomitant]
     Dosage: 2 MG, SINGLE
     Dates: start: 20100510
  15. VINCRISTINE [Concomitant]
     Dosage: 2 MG, SINGLE
     Dates: start: 20100607
  16. PREDNISOLONE [Concomitant]
     Indication: LYMPHOMA
     Dosage: 100 MG, SINGLE
     Dates: start: 20100323
  17. PREDNISOLONE [Concomitant]
     Dosage: 100 MG, SINGLE
     Dates: start: 20100412
  18. PREDNISOLONE [Concomitant]
     Dosage: 100 MG, SINGLE
     Dates: start: 20100510
  19. PREDNISOLONE [Concomitant]
     Dosage: 100 MG, SINGLE
     Dates: start: 20100607
  20. LOXOPROFEN SODIUM [Concomitant]
     Indication: PROPHYLAXIS
     Dosage: 1 TABLET, SINGLE
     Route: 048
  21. VENA [Concomitant]
     Indication: PROPHYLAXIS
     Dosage: 3 TABLET, SINGLE
     Route: 048

REACTIONS (1)
  - PROGRESSIVE MULTIFOCAL LEUKOENCEPHALOPATHY [None]
